FAERS Safety Report 25597082 (Version 2)
Quarter: 2025Q3

REPORT INFORMATION
  Report Type: Spontaneous
  Country: EU (occurrence: EU)
  Receive Date: 20250723
  Receipt Date: 20250730
  Transmission Date: 20251021
  Serious: Yes (Hospitalization, Other)
  Sender: ROVIPHARM SAS
  Company Number: EU-ROVI-20250835

PATIENT
  Age: 36 Year
  Sex: Male

DRUGS (1)
  1. RISPERIDONE [Suspect]
     Active Substance: RISPERIDONE
     Indication: Schizophrenia

REACTIONS (2)
  - Schizophrenia [Not Recovered/Not Resolved]
  - Condition aggravated [Not Recovered/Not Resolved]
